FAERS Safety Report 7624098-2 (Version None)
Quarter: 2011Q3

REPORT INFORMATION
  Report Type: 
  Country: None (occurrence: None)
  Receive Date: 20110720
  Receipt Date: 20110709
  Transmission Date: 20111222
  Serious: Yes (Other)
  Sender: FDA-Public Use
  Company Number: PHHY2011CO62498

PATIENT
  Age: 39 Year
  Sex: Female

DRUGS (1)
  1. BROMOCRIPTINE MESYLATE [Suspect]
     Dosage: UNK UKN, UNK

REACTIONS (11)
  - TUMOUR COMPRESSION [None]
  - JAW DISORDER [None]
  - HEMIANOPIA [None]
  - ACROMEGALY [None]
  - PITUITARY TUMOUR [None]
  - CLUBBING [None]
  - BLINDNESS [None]
  - RENAL CYST [None]
  - HEPATIC CYST [None]
  - HEADACHE [None]
  - VISUAL IMPAIRMENT [None]
